FAERS Safety Report 15419187 (Version 1)
Quarter: 2018Q3

REPORT INFORMATION
  Report Type: Spontaneous
  Country: US (occurrence: US)
  Receive Date: 20180924
  Receipt Date: 20180924
  Transmission Date: 20181010
  Serious: Yes (Other)
  Sender: FDA-Public Use
  Company Number: US-AMGEN-USASP2018130045

PATIENT
  Age: 71 Year
  Sex: Female

DRUGS (1)
  1. PROLIA [Suspect]
     Active Substance: DENOSUMAB
     Indication: PRODUCT USED FOR UNKNOWN INDICATION
     Dosage: UNK
     Route: 065
     Dates: start: 20180904

REACTIONS (9)
  - Dyspnoea [Not Recovered/Not Resolved]
  - Back pain [Unknown]
  - Pain [Unknown]
  - Chest discomfort [Unknown]
  - Arthralgia [Unknown]
  - Cataract operation [Unknown]
  - Pain in extremity [Unknown]
  - Acquired cardiac septal defect [Unknown]
  - Presyncope [Recovered/Resolved]

NARRATIVE: CASE EVENT DATE: 201809
